FAERS Safety Report 12543410 (Version 1)
Quarter: 2016Q3

REPORT INFORMATION
  Report Type: Spontaneous
  Country: US (occurrence: US)
  Receive Date: 20160711
  Receipt Date: 20160711
  Transmission Date: 20161109
  Serious: No
  Sender: FDA-Public Use
  Company Number: US-TEVA-591450USA

PATIENT
  Sex: Female
  Weight: 56.75 kg

DRUGS (1)
  1. VENLAFAXINE [Suspect]
     Active Substance: VENLAFAXINE HYDROCHLORIDE
     Indication: MAJOR DEPRESSION
     Dates: start: 20150831, end: 20150901

REACTIONS (7)
  - Somnolence [Unknown]
  - Dizziness [Unknown]
  - Hyperhidrosis [Unknown]
  - Product substitution issue [Unknown]
  - Asthenia [Unknown]
  - Hot flush [Unknown]
  - Chest pain [Unknown]
